FAERS Safety Report 16566704 (Version 1)
Quarter: 2019Q3

REPORT INFORMATION
  Report Type: Spontaneous
  Country: GB (occurrence: GB)
  Receive Date: 20190712
  Receipt Date: 20190712
  Transmission Date: 20191004
  Serious: Yes (Hospitalization)
  Sender: FDA-Public Use
  Company Number: GB-PFIZER INC-2019290606

PATIENT
  Age: 65 Year
  Sex: Female

DRUGS (10)
  1. ACETYLSALICYLIC ACID [Concomitant]
     Active Substance: ASPIRIN
     Dosage: 75 MG, 1X/DAY
     Route: 048
  2. THIAMINE. [Concomitant]
     Active Substance: THIAMINE
     Dosage: 100 MG, 1X/DAYMORNING.
     Route: 048
  3. FLUCLOXACILLIN [Concomitant]
     Active Substance: FLUCLOXACILLIN
     Indication: SKIN INFECTION
     Dosage: 2000 MG, 1X/DAYFOR 7 DAYS
     Route: 048
     Dates: start: 20190429, end: 20190505
  4. OMEPRAZOLE. [Suspect]
     Active Substance: OMEPRAZOLE
     Dosage: 20 MG, 1X/DAY
     Route: 048
     Dates: end: 20190502
  5. ATORVASTATIN [Concomitant]
     Active Substance: ATORVASTATIN
     Dosage: 40 MG, 1X/DAY NIGHT.
     Route: 048
  6. EVACAL D3 CHEWABLE [Concomitant]
     Dosage: 2 DF, 1X/DAY 1500MG/400UNIT
     Route: 048
  7. ACICLOVIR [Concomitant]
     Active Substance: ACYCLOVIR
     Indication: HERPES ZOSTER
     Dosage: 7 DAYS
     Route: 048
     Dates: start: 20190429, end: 20190505
  8. ATENOLOL. [Concomitant]
     Active Substance: ATENOLOL
     Dosage: 25 MG, 1X/DAY
     Route: 048
  9. LEVETIRACETAM. [Suspect]
     Active Substance: LEVETIRACETAM
     Dosage: 1000 MG, 1X/DAY (NOW REDUCE TO STOP)
     Route: 048
     Dates: end: 20190604
  10. MIRTAZAPINE. [Concomitant]
     Active Substance: MIRTAZAPINE
     Dosage: 15 MG, 1X/DAY  NIGHT.
     Route: 048

REACTIONS (5)
  - Dizziness [Unknown]
  - Hypophosphataemia [Unknown]
  - Hypocalcaemia [Unknown]
  - Hypomagnesaemia [Recovering/Resolving]
  - Bradycardia [Unknown]

NARRATIVE: CASE EVENT DATE: 20190502
